FAERS Safety Report 14349561 (Version 2)
Quarter: 2019Q4

REPORT INFORMATION
  Report Type: Other
  Country: BE (occurrence: BE)
  Receive Date: 20180104
  Receipt Date: 20191003
  Transmission Date: 20200122
  Serious: Yes (Death, Life-Threatening, Disabling, Congenital Anomaly, Other)
  Sender: FDA-Public Use
  Company Number: BE-MACLEODS PHARMACEUTICALS US LTD-MAC2017007867

PATIENT

DRUGS (16)
  1. D-CURE [Suspect]
     Active Substance: CHOLECALCIFEROL
     Indication: PRODUCT USED FOR UNKNOWN INDICATION
     Dosage: 25 KIU, UNK
     Route: 064
  2. SIPRALEXA [Suspect]
     Active Substance: ESCITALOPRAM OXALATE
     Indication: PRODUCT USED FOR UNKNOWN INDICATION
     Dosage: 10 MG, Z
     Route: 064
  3. XANTHIUM (THEOPHYLLINE) [Suspect]
     Active Substance: THEOPHYLLINE
     Indication: PRODUCT USED FOR UNKNOWN INDICATION
     Dosage: 200 MG, QD
     Route: 064
  4. RELVAR ELLIPTA [Suspect]
     Active Substance: FLUTICASONE FUROATE\VILANTEROL TRIFENATATE
     Indication: PRODUCT USED FOR UNKNOWN INDICATION
     Dosage: 1 DF, QD (INHALATION POWDER, PRE-DISPENSED)
     Route: 064
  5. FLUTICASONE PROPIONATE. [Suspect]
     Active Substance: FLUTICASONE PROPIONATE
     Indication: PRODUCT USED FOR UNKNOWN INDICATION
     Dosage: UNK, QD (INHALATION POWDER)
     Route: 064
  6. PANTOPRAZOLE [Suspect]
     Active Substance: PANTOPRAZOLE
     Indication: PRODUCT USED FOR UNKNOWN INDICATION
     Dosage: UNK
     Route: 064
  7. VILANTEROL TRIFENATATE [Suspect]
     Active Substance: VILANTEROL TRIFENATATE
     Indication: PRODUCT USED FOR UNKNOWN INDICATION
     Dosage: 1 DOSAGE FORM, QD (INHALATION POWDER)
     Route: 064
  8. XYZALL [Suspect]
     Active Substance: LEVOCETIRIZINE DIHYDROCHLORIDE
     Indication: PRODUCT USED FOR UNKNOWN INDICATION
     Dosage: 5 MILLIGRAM, QD
     Route: 064
  9. VENTOLIN [Suspect]
     Active Substance: ALBUTEROL SULFATE
     Indication: PRODUCT USED FOR UNKNOWN INDICATION
     Dosage: 100 ?G, UNK
     Route: 064
  10. AVAMYS [Suspect]
     Active Substance: FLUTICASONE FUROATE
     Indication: PRODUCT USED FOR UNKNOWN INDICATION
     Dosage: 2 DF, QD (UNK BID) (NASAL SPRAY)
     Route: 064
  11. LEVOCETIRIZINE DIHYDROCHLORIDE 5MG TABLET [Suspect]
     Active Substance: LEVOCETIRIZINE DIHYDROCHLORIDE
     Indication: PRODUCT USED FOR UNKNOWN INDICATION
     Dosage: 5 MG, QD
     Route: 064
  12. FLIXOTIDE [Suspect]
     Active Substance: FLUTICASONE PROPIONATE
     Indication: PRODUCT USED FOR UNKNOWN INDICATION
     Dosage: 500 ?G, QD, (250 UG, BID)
     Route: 064
  13. NUCALA [Suspect]
     Active Substance: MEPOLIZUMAB
     Indication: PRODUCT USED FOR UNKNOWN INDICATION
     Dosage: 100 MG, UNK, GESTATION PERIOD AT TIME OF EXPOSURE- 1 WEEK, POWDER FOR SOLUTION FOR INJECTION
     Route: 064
     Dates: start: 20170112
  14. PANTOMED [PANTOPRAZOLE] [Suspect]
     Active Substance: PANTOPRAZOLE
     Indication: PRODUCT USED FOR UNKNOWN INDICATION
     Dosage: UNK
     Route: 064
  15. SERETIDE [Suspect]
     Active Substance: FLUTICASONE PROPIONATE\SALMETEROL XINAFOATE
     Indication: PRODUCT USED FOR UNKNOWN INDICATION
     Dosage: UNK
     Route: 064
  16. THEOPHYLLINE [Suspect]
     Active Substance: THEOPHYLLINE ANHYDROUS
     Indication: PRODUCT USED FOR UNKNOWN INDICATION
     Dosage: UNK
     Route: 064

REACTIONS (3)
  - Foetal exposure during pregnancy [Fatal]
  - Foetal malformation [Fatal]
  - Trisomy 18 [Fatal]

NARRATIVE: CASE EVENT DATE: 20170808
